FAERS Safety Report 14272148 (Version 1)
Quarter: 2017Q4

REPORT INFORMATION
  Report Type: Spontaneous
  Country: US (occurrence: None)
  Receive Date: 20171211
  Receipt Date: 20171211
  Transmission Date: 20180321
  Serious: Yes (Death)
  Sender: FDA-Public Use
  Company Number: None

PATIENT
  Age: 63 Year
  Sex: Male

DRUGS (1)
  1. ORENCIA [Suspect]
     Active Substance: ABATACEPT
     Indication: RHEUMATOID ARTHRITIS
     Dosage: 125MG PFS Q WEEK SUBCUTANEOUSLY
     Route: 058
     Dates: start: 201707, end: 2017

REACTIONS (1)
  - Death [None]

NARRATIVE: CASE EVENT DATE: 20170830
